FAERS Safety Report 17062768 (Version 6)
Quarter: 2021Q4

REPORT INFORMATION
  Report Type: Report from Study
  Country: US (occurrence: US)
  Receive Date: 20191122
  Receipt Date: 20211218
  Transmission Date: 20220303
  Serious: Yes (Life-Threatening)
  Sender: FDA-Public Use
  Company Number: None

PATIENT
  Age: 71 Year
  Sex: Female

DRUGS (2)
  1. COSENTYX [Suspect]
     Active Substance: SECUKINUMAB
     Indication: Psoriatic arthropathy
     Dosage: UNK
     Route: 065
  2. COSENTYX [Suspect]
     Active Substance: SECUKINUMAB
     Dosage: 300 UNK, QW
     Route: 058
     Dates: start: 20180205, end: 202112

REACTIONS (4)
  - Meningitis [Recovering/Resolving]
  - Condition aggravated [Unknown]
  - Psoriasis [Unknown]
  - Pruritus [Unknown]

NARRATIVE: CASE EVENT DATE: 20211207
